FAERS Safety Report 18472658 (Version 1)
Quarter: 2020Q4

REPORT INFORMATION
  Report Type: Spontaneous
  Country: FR (occurrence: FR)
  Receive Date: 20201106
  Receipt Date: 20201106
  Transmission Date: 20210114
  Serious: Yes (Hospitalization)
  Sender: FDA-Public Use
  Company Number: FR-TEVA-2020-FR-1844843

PATIENT
  Age: 46 Year
  Sex: Male

DRUGS (1)
  1. AMOXICILLINE [Suspect]
     Active Substance: AMOXICILLIN
     Indication: TOOTH ABSCESS
     Dosage: 1 DOSAGE FORMS
     Route: 048
     Dates: start: 20170218, end: 20170218

REACTIONS (2)
  - Anaphylactic shock [Recovered/Resolved]
  - Urticaria [Recovered/Resolved]

NARRATIVE: CASE EVENT DATE: 20170218
